FAERS Safety Report 4631622-0 (Version None)
Quarter: 2005Q2

REPORT INFORMATION
  Report Type: 
  Country: None (occurrence: None)
  Receive Date: 20050407
  Receipt Date: 20050401
  Transmission Date: 20051028
  Serious: Yes (Hospitalization, Other)
  Sender: FDA-Public Use
  Company Number: 2005UW03917

PATIENT
  Age: 64 Year
  Sex: Female
  Weight: 78.4723 kg

DRUGS (12)
  1. CRESTOR [Suspect]
     Indication: CORONARY ARTERY DISEASE
     Dosage: 20 MG DAILY PO
     Route: 048
     Dates: start: 20040501, end: 20041013
  2. CRESTOR [Suspect]
     Indication: HYPERLIPIDAEMIA
     Dosage: 20 MG DAILY PO
     Route: 048
     Dates: start: 20040501, end: 20041013
  3. CRESTOR [Suspect]
     Indication: CORONARY ARTERY DISEASE
     Dosage: 40 MG DAILY PO
     Route: 048
     Dates: start: 20041013, end: 20041227
  4. CRESTOR [Suspect]
     Indication: HYPERLIPIDAEMIA
     Dosage: 40 MG DAILY PO
     Route: 048
     Dates: start: 20041013, end: 20041227
  5. LEVOTHYROXINE SODIUM [Concomitant]
  6. ACTOS [Concomitant]
  7. GLUCOTROL XL [Concomitant]
  8. LISINOPRIL [Concomitant]
  9. COREG [Concomitant]
  10. ZOLOFT [Concomitant]
  11. OMEPRAZOLE [Concomitant]
  12. PLAVIX [Concomitant]

REACTIONS (8)
  - CHILLS [None]
  - COSTOVERTEBRAL ANGLE TENDERNESS [None]
  - MEDICATION ERROR [None]
  - MYALGIA [None]
  - NEUTROPENIA [None]
  - PYREXIA [None]
  - THROMBOCYTOPENIA [None]
  - WHITE BLOOD CELL COUNT DECREASED [None]
